FAERS Safety Report 9411509 (Version 1)
Quarter: 2013Q3

REPORT INFORMATION
  Report Type: Spontaneous
  Country: US (occurrence: None)
  Receive Date: 20130718
  Receipt Date: 20130718
  Transmission Date: 20140515
  Serious: Yes (Life-Threatening, Hospitalization, Other)
  Sender: FDA-Public Use
  Company Number: None

PATIENT
  Age: 57 Year
  Sex: Female
  Weight: 65.77 kg

DRUGS (3)
  1. CITALOPRAM [Suspect]
     Indication: DEPRESSION
     Dosage: 2 1X MORNING
     Dates: start: 2010, end: 201305
  2. CITALOPRAM [Suspect]
     Indication: ANXIETY
     Dosage: 2 1X MORNING
     Dates: start: 2010, end: 201305
  3. TRAZODONE [Suspect]
     Dosage: 2 1X NIGHT
     Dates: start: 2010

REACTIONS (5)
  - Pneumonia [None]
  - Disorientation [None]
  - Near drowning [None]
  - Panic reaction [None]
  - Dyspnoea [None]
